FAERS Safety Report 13708087 (Version 2)
Quarter: 2017Q3

REPORT INFORMATION
  Report Type: Spontaneous
  Country: ZA (occurrence: ZA)
  Receive Date: 20170630
  Receipt Date: 20170825
  Transmission Date: 20171127
  Serious: Yes (Other)
  Sender: FDA-Public Use
  Company Number: ZA-BAYER-2017-121210

PATIENT
  Age: 33 Year
  Sex: Female
  Weight: 80 kg

DRUGS (1)
  1. YASMIN [Suspect]
     Active Substance: DROSPIRENONE\ETHINYL ESTRADIOL
     Dosage: UNK
     Route: 048
     Dates: start: 201607

REACTIONS (4)
  - Embolism venous [Recovered/Resolved]
  - Papilloedema [Recovered/Resolved]
  - Tinnitus [Recovered/Resolved]
  - Cavernous sinus thrombosis [Recovered/Resolved]

NARRATIVE: CASE EVENT DATE: 201704
